FAERS Safety Report 11348743 (Version 1)
Quarter: 2015Q3

REPORT INFORMATION
  Report Type: Report from Study
  Country: FR (occurrence: FR)
  Receive Date: 20150806
  Receipt Date: 20150806
  Transmission Date: 20151125
  Serious: Yes (Hospitalization)
  Sender: FDA-Public Use
  Company Number: FR-B.I. PHARMACEUTICALS,INC./RIDGEFIELD-2015-BI-41629II

PATIENT
  Age: 58 Year
  Sex: Male

DRUGS (4)
  1. CISPLATINE [Suspect]
     Active Substance: CISPLATIN
     Indication: SQUAMOUS CELL CARCINOMA
     Dosage: DAILY DOSE: 75 MG/M2
     Route: 042
     Dates: start: 20150723, end: 20150723
  2. BIBW 2992 [Suspect]
     Active Substance: AFATINIB
     Indication: SQUAMOUS CELL CARCINOMA
     Dosage: 20 MG
     Route: 048
     Dates: start: 20150724, end: 20150729
  3. ZARZIO [Concomitant]
     Active Substance: FILGRASTIM
     Indication: INFECTION PROPHYLAXIS
     Dosage: DOSE PER APPLICATION AND DAILY DOSE: 30 MU/0.5 ML
     Route: 058
     Dates: start: 20150728
  4. TAXOTERE [Suspect]
     Active Substance: DOCETAXEL
     Indication: SQUAMOUS CELL CARCINOMA
     Dosage: DAILY DOSE: 75 MG/M2
     Route: 042
     Dates: start: 20150723, end: 20150723

REACTIONS (1)
  - Neutropenia [Not Recovered/Not Resolved]

NARRATIVE: CASE EVENT DATE: 20150729
